FAERS Safety Report 23943137 (Version 2)
Quarter: 2024Q3

REPORT INFORMATION
  Report Type: Spontaneous
  Country: US (occurrence: US)
  Receive Date: 20240605
  Receipt Date: 20240925
  Transmission Date: 20241017
  Serious: No
  Sender: SANOFI AVENTIS
  Company Number: US-SA-SAC20240603000202

PATIENT
  Sex: Female
  Weight: 70.295 kg

DRUGS (2)
  1. DUPIXENT [Suspect]
     Active Substance: DUPILUMAB
     Indication: Asthma
     Dosage: 300 MG, QOW
     Route: 058
  2. STERILE WATER [Concomitant]
     Active Substance: WATER
     Dosage: UNK

REACTIONS (3)
  - Malaise [Unknown]
  - Urticaria [Unknown]
  - Drug ineffective [Unknown]
